FAERS Safety Report 6750018-9 (Version None)
Quarter: 2010Q2

REPORT INFORMATION
  Report Type: 
  Country: None (occurrence: None)
  Receive Date: 20100601
  Receipt Date: 20100525
  Transmission Date: 20101027
  Serious: Yes (Hospitalization)
  Sender: FDA-Public Use
  Company Number: GXKR2010BE05878

PATIENT
  Age: 65 Year
  Sex: Female

DRUGS (2)
  1. METHADONE (NGX) [Suspect]
     Indication: PAIN
     Dosage: 30 MG, TID
     Route: 048
  2. METHADONE (NGX) [Suspect]
     Dosage: 10 MG, TID
     Route: 048

REACTIONS (8)
  - APATHY [None]
  - CATATONIA [None]
  - DRUG DISPENSING ERROR [None]
  - EXTENSOR PLANTAR RESPONSE [None]
  - HYPERREFLEXIA [None]
  - LEUKOENCEPHALOPATHY [None]
  - MUSCLE RIGIDITY [None]
  - OVERDOSE [None]
